FAERS Safety Report 6368526-1 (Version None)
Quarter: 2009Q3

REPORT INFORMATION
  Report Type: 
  Country: None (occurrence: None)
  Receive Date: 20090922
  Receipt Date: 20090915
  Transmission Date: 20100115
  Serious: Yes (Hospitalization)
  Sender: FDA-Public Use
  Company Number: B0594440A

PATIENT
  Sex: Female

DRUGS (2)
  1. TYVERB [Suspect]
     Indication: BREAST CANCER
     Route: 065
  2. CAPECITABINE [Suspect]
     Indication: BREAST CANCER
     Route: 065

REACTIONS (1)
  - MYOCARDIAL INFARCTION [None]
